FAERS Safety Report 4697684-X (Version None)
Quarter: 2005Q2

REPORT INFORMATION
  Report Type: 
  Country: None (occurrence: None)
  Receive Date: 20050622
  Receipt Date: 20050609
  Transmission Date: 20051028
  Serious: Yes (Other)
  Sender: FDA-Public Use
  Company Number: 2005067044

PATIENT
  Age: 58 Year
  Sex: Female
  Weight: 86.1834 kg

DRUGS (10)
  1. NORVASC [Suspect]
     Indication: BLOOD PRESSURE
     Dosage: 10 MG (10 MG, QD), ORAL
     Route: 048
     Dates: start: 20050301
  2. MAXIDEX (BENZALKONIUM CHLORIDE, DEXAMETHASONE, PHENYLMERCURIC NITRATE) [Concomitant]
  3. PREMPRO [Concomitant]
  4. NIACN (NICOTINIC ACID) [Concomitant]
  5. ASPIRIN [Concomitant]
  6. IBUPROFEN [Concomitant]
  7. MAGNESIUM (MAGNESIUM) [Concomitant]
  8. AMPICILLIN [Concomitant]
  9. CRANBERRY (VACCINIUM MACROCARPON) [Concomitant]
  10. TENORMIN [Concomitant]

REACTIONS (8)
  - BLOOD POTASSIUM DECREASED [None]
  - BLOOD PRESSURE SYSTOLIC INCREASED [None]
  - CATARACT [None]
  - DIZZINESS [None]
  - ERYTHEMA [None]
  - FLUSHING [None]
  - JOINT SWELLING [None]
  - OEDEMA PERIPHERAL [None]
